FAERS Safety Report 18087247 (Version 1)
Quarter: 2020Q3

REPORT INFORMATION
  Report Type: Spontaneous
  Country: CN (occurrence: CN)
  Receive Date: 20200729
  Receipt Date: 20200729
  Transmission Date: 20201103
  Serious: Yes (Other)
  Sender: FDA-Public Use
  Company Number: CN-ASTRAZENECA-2020SE93742

PATIENT
  Age: 29145 Day
  Sex: Male

DRUGS (3)
  1. ASPIRIN. [Concomitant]
     Active Substance: ASPIRIN
  2. BRILINTA [Suspect]
     Active Substance: TICAGRELOR
     Indication: ANTIPLATELET THERAPY
     Route: 048
     Dates: start: 20200610, end: 20200707
  3. METOPROLOL. [Concomitant]
     Active Substance: METOPROLOL
     Dates: start: 20200611

REACTIONS (6)
  - Chest discomfort [Recovered/Resolved]
  - Fatigue [Recovering/Resolving]
  - Emphysema [Recovering/Resolving]
  - Pneumonitis [Recovering/Resolving]
  - Asthma [Recovering/Resolving]
  - Dyspnoea [Recovered/Resolved]

NARRATIVE: CASE EVENT DATE: 20200610
